FAERS Safety Report 23310895 (Version 1)
Quarter: 2023Q4

REPORT INFORMATION
  Report Type: Spontaneous
  Country: CN (occurrence: CN)
  Receive Date: 20231218
  Receipt Date: 20231218
  Transmission Date: 20240110
  Serious: No
  Sender: FDA-Public Use
  Company Number: CN-ALKEM LABORATORIES LIMITED-CN-ALKEM-2023-06766

PATIENT
  Age: 55 Year
  Sex: Male

DRUGS (10)
  1. MYCOPHENOLATE MOFETIL [Suspect]
     Active Substance: MYCOPHENOLATE MOFETIL
     Indication: Dyspnoea exertional
     Dosage: 0.5 GRAM, BID, DISPERSIBLE (TWICE A DAY WAS PERFORMED FOR THREE WEEKS)
     Route: 048
  2. MYCOPHENOLATE MOFETIL [Suspect]
     Active Substance: MYCOPHENOLATE MOFETIL
     Indication: Pulmonary arterial hypertension
     Dosage: 0.75 GRAM, BID (TWICE A DAY), INCREASED DOSE
     Route: 048
  3. METHYLPREDNISOLONE [Suspect]
     Active Substance: METHYLPREDNISOLONE
     Indication: Dyspnoea exertional
     Dosage: 8 MILLIGRAM, OD (ONCE A DAY FOR 2 WEEKS)
     Route: 065
  4. METHYLPREDNISOLONE [Suspect]
     Active Substance: METHYLPREDNISOLONE
     Indication: Pulmonary arterial hypertension
     Dosage: 20 MILLIGRAM, OD (ONCE A DAY), INCREASED DOSE
     Route: 065
  5. ADALIMUMAB [Concomitant]
     Active Substance: ADALIMUMAB\ISOPROPYL ALCOHOL
     Indication: Product used for unknown indication
     Dosage: 40 MILLIGRAM, (ONCE IN 2 WEEKS, INJECTION)
     Route: 058
  6. LENVATINIB [Concomitant]
     Active Substance: LENVATINIB
     Indication: Cholangiocarcinoma
     Dosage: 8 MILLIGRAM, QD (DAILY WAS PERFORMED FOR 21 CYCLES)
     Route: 048
  7. LENVATINIB [Concomitant]
     Active Substance: LENVATINIB
     Dosage: UNK (RECHALLENGED) FIRST THREE-WEEK CYCLE
     Route: 065
  8. PACLITAXEL [Concomitant]
     Active Substance: PACLITAXEL
     Indication: Chemotherapy
     Dosage: 200 MILLIGRAM (ALBUMIN-BOUND WITH A CYCLE OF THREE WEEKS)
     Route: 065
     Dates: start: 20200323
  9. PEMBROLIZUMAB [Concomitant]
     Active Substance: PEMBROLIZUMAB
     Indication: Cholangiocarcinoma
     Dosage: 200 MILLIGRAM (CYCLE OF THREE WEEKS)
     Route: 042
  10. PEMBROLIZUMAB [Concomitant]
     Active Substance: PEMBROLIZUMAB
     Dosage: UNK (RECHALLENGED), FIRST THREE-WEEK CYCLE
     Route: 065

REACTIONS (1)
  - Therapy partial responder [Unknown]
